FAERS Safety Report 9114543 (Version 4)
Quarter: 2013Q1

REPORT INFORMATION
  Report Type: Spontaneous
  Country: TZ (occurrence: None)
  Receive Date: 20130129
  Receipt Date: 20130308
  Transmission Date: 20140127
  Serious: Yes (Hospitalization)
  Sender: FDA-Public Use
  Company Number: AE13-009

PATIENT
  Age: 25 Year
  Sex: Male
  Weight: 55 kg

DRUGS (5)
  1. PYRAZINAMIDE [Suspect]
     Indication: TUBERCULOSIS
     Dates: start: 20121130, end: 20130107
  2. MOXIFLOXACIN [Suspect]
     Dates: start: 20121130, end: 20130107
  3. HAEMOVIT [Concomitant]
  4. PARACETAMOL [Concomitant]
  5. MARALONE [Concomitant]

REACTIONS (5)
  - Aspartate aminotransferase increased [None]
  - Alanine aminotransferase increased [None]
  - Blood bilirubin increased [None]
  - Drug screen positive [None]
  - Agranulocytosis [None]
